FAERS Safety Report 18276896 (Version 1)
Quarter: 2020Q3

REPORT INFORMATION
  Report Type: Spontaneous
  Country: US (occurrence: US)
  Receive Date: 20200917
  Receipt Date: 20200917
  Transmission Date: 20201103
  Serious: Yes (Other)
  Sender: FDA-Public Use
  Company Number: US-ASTRAZENECA-2020SF17053

PATIENT
  Age: 19567 Day
  Sex: Female
  Weight: 76.2 kg

DRUGS (6)
  1. DEXAMETHASONE. [Concomitant]
     Active Substance: DEXAMETHASONE
     Indication: SYMPTOMATIC TREATMENT
     Dates: start: 202003
  2. TYLENOL [Concomitant]
     Active Substance: ACETAMINOPHEN
     Indication: SYMPTOMATIC TREATMENT
     Dates: start: 202003
  3. MEPERIDINE [Concomitant]
     Active Substance: MEPERIDINE
     Indication: SYMPTOMATIC TREATMENT
     Dates: start: 20200707
  4. IMFINZI [Suspect]
     Active Substance: DURVALUMAB
     Indication: LUNG CONSOLIDATION
     Route: 040
     Dates: start: 20200317, end: 20200707
  5. IMFINZI [Suspect]
     Active Substance: DURVALUMAB
     Indication: LUNG CONSOLIDATION
     Route: 042
     Dates: start: 20191010, end: 202003
  6. BENADRYL [Concomitant]
     Active Substance: DIPHENHYDRAMINE HYDROCHLORIDE
     Indication: SYMPTOMATIC TREATMENT
     Dates: start: 202003

REACTIONS (2)
  - Infusion related reaction [Recovered/Resolved]
  - Chest pain [Recovered/Resolved]

NARRATIVE: CASE EVENT DATE: 20200707
